FAERS Safety Report 4784047-1 (Version None)
Quarter: 2005Q3

REPORT INFORMATION
  Report Type: 
  Country: None (occurrence: None)
  Receive Date: 20050930
  Receipt Date: 20050922
  Transmission Date: 20060218
  Serious: Yes (Other)
  Sender: FDA-Public Use
  Company Number: 2005UW14195

PATIENT
  Age: 54 Year
  Sex: Female

DRUGS (3)
  1. ATENOLOL [Suspect]
     Route: 048
  2. SEROQUEL [Suspect]
     Route: 048
  3. NARDIL [Suspect]

REACTIONS (4)
  - BLOOD PRESSURE DECREASED [None]
  - BRADYCARDIA [None]
  - INTENTIONAL MISUSE [None]
  - OVERDOSE [None]
